FAERS Safety Report 9748352 (Version 1)
Quarter: 2013Q4

REPORT INFORMATION
  Report Type: Spontaneous
  Country: IN (occurrence: None)
  Receive Date: 20131206
  Receipt Date: 20131206
  Transmission Date: 20140711
  Serious: Yes (Hospitalization)
  Sender: FDA-Public Use
  Company Number: AUR-APL-2013-10130

PATIENT
  Age: 48 Year
  Sex: Female

DRUGS (1)
  1. AMLODIPINE [Suspect]
     Indication: HYPERTENSION
     Route: 048

REACTIONS (11)
  - Gingival swelling [None]
  - Discomfort [None]
  - Deformity [None]
  - Mastication disorder [None]
  - Gingival bleeding [None]
  - Gingival inflammation [None]
  - Plague [None]
  - Loose tooth [None]
  - Bone loss [None]
  - Gingival hyperplasia [None]
  - Tooth deposit [None]
